FAERS Safety Report 12723343 (Version 2)
Quarter: 2016Q4

REPORT INFORMATION
  Report Type: Spontaneous
  Country: US (occurrence: US)
  Receive Date: 20160908
  Receipt Date: 20161016
  Transmission Date: 20170207
  Serious: Yes (Hospitalization, Other)
  Sender: FDA-Public Use
  Company Number: US-AMGEN-USASP2016117233

PATIENT
  Age: 63 Year
  Sex: Male
  Weight: 86.17 kg

DRUGS (29)
  1. BIOTIN [Concomitant]
     Active Substance: BIOTIN
     Dosage: 300 MUG, UNK
  2. EMTRIVA [Concomitant]
     Active Substance: EMTRICITABINE
     Dosage: 200 MG (1 TABLET), QAM
  3. FISH OIL [Concomitant]
     Active Substance: FISH OIL
     Dosage: 1200 MG (2 CAP), BID
     Route: 048
  4. VITAMIN B COMPLEX [Concomitant]
     Active Substance: CYANOCOBALAMIN\DEXPANTHENOL\NIACINAMIDE\PYRIDOXINE HYDROCHLORIDE\RIBOFLAVIN 5^-PHOSPHATE SODIUM\THIAMINE HYDROCHLORIDE\VITAMIN B COMPLEX
     Dosage: UNK UNK, (1 CAPSULE) QD
     Route: 048
  5. VITAMIN K2 [Concomitant]
     Active Substance: MENAQUINONE 6
     Dosage: 50 MUG (1 CAPSULE), QD
     Route: 048
  6. MAGNESIUM OXIDE. [Concomitant]
     Active Substance: MAGNESIUM OXIDE
     Dosage: 500 MG (1 TABLET), QD
     Route: 048
  7. ACETYL-L-CARNITINE [Concomitant]
     Dosage: 800 MG, UNK
  8. ALPHA LIPOIC ACID [Concomitant]
     Active Substance: .ALPHA.-LIPOIC ACID
     Dosage: 400 MG, UNK
  9. QUERCETIN DIHYDRATE [Concomitant]
     Dosage: 80 MG, UNK
  10. VITAMIN D [Concomitant]
     Active Substance: CHOLECALCIFEROL
     Dosage: 10000 IU (1 CAPSULE), QD
     Route: 048
  11. COQ 10 [Concomitant]
     Active Substance: UBIDECARENONE
     Dosage: 24 MG, UNK
  12. PROLIA [Suspect]
     Active Substance: DENOSUMAB
     Indication: OSTEOPOROSIS
     Dosage: 60 MG IN 1 ML, Q6MO
     Route: 058
     Dates: start: 20160301
  13. ABACAVIR. [Concomitant]
     Active Substance: ABACAVIR
     Dosage: 300 MG (1 TABLET), BID
     Route: 048
  14. VIRAMUNE [Concomitant]
     Active Substance: NEVIRAPINE
     Dosage: 200 MG (1 TABLET), BID
     Route: 048
  15. LOSARTAN. [Concomitant]
     Active Substance: LOSARTAN
     Dosage: 100 MG (1 TABLE), QAM
     Route: 048
  16. PERCOCET [Concomitant]
     Active Substance: ACETAMINOPHEN\OXYCODONE HYDROCHLORIDE
     Dosage: 5 MG/ 325MG (1 TABLET), PRN
     Route: 048
  17. VITAMIN E [Concomitant]
     Active Substance: .ALPHA.-TOCOPHEROL
     Dosage: 400 IU (1 TABLET), BID
     Route: 048
  18. CALCIUM CITRATE [Concomitant]
     Active Substance: CALCIUM CITRATE
     Dosage: 600 MG (1 TABLET), TID
     Route: 048
  19. HCTZ [Concomitant]
     Active Substance: HYDROCHLOROTHIAZIDE
     Dosage: 12.5 MG (1 TABLET), QAM
     Route: 048
  20. GABAPENTIN. [Concomitant]
     Active Substance: GABAPENTIN
     Dosage: 100 MG (1 TABLET), TID
     Route: 048
  21. DHEA [Concomitant]
     Active Substance: PRASTERONE
     Dosage: 50 MG (1 CAPSULE), QAM
     Route: 048
  22. JUVENON [Concomitant]
     Dosage: UNK UNK, (2 CAPSULES) BID
     Route: 048
  23. VITAMIN D3 [Concomitant]
     Active Substance: CHOLECALCIFEROL
     Dosage: 1000 IU, UNK
  24. VITAMIN B12 [Concomitant]
     Active Substance: CYANOCOBALAMIN
     Dosage: 60 MUG, UNK
  25. N ACETYL CYSTEINE [Concomitant]
     Active Substance: ACETYLCYSTEINE
     Dosage: 100 MG, UNK
  26. ISENTRESS [Concomitant]
     Active Substance: RALTEGRAVIR POTASSIUM
     Dosage: 400 MG (1 TABLET), BID
     Route: 048
  27. PEPCID [Concomitant]
     Active Substance: FAMOTIDINE
     Dosage: 20 MG (1 TABLET), BID
     Route: 048
  28. CLONAZEPAM. [Concomitant]
     Active Substance: CLONAZEPAM
     Dosage: 1 MG (2 TABLETS), QHS
     Route: 048
  29. CREATINE MONOHYDRATE [Concomitant]
     Active Substance: CREATINE MONOHYDRATE
     Dosage: 80 MG, UNK

REACTIONS (2)
  - Spinal compression fracture [Not Recovered/Not Resolved]
  - Spinal operation [Unknown]

NARRATIVE: CASE EVENT DATE: 201608
